FAERS Safety Report 12898682 (Version 1)
Quarter: 2016Q4

REPORT INFORMATION
  Report Type: Spontaneous
  Country: TW (occurrence: TW)
  Receive Date: 20161101
  Receipt Date: 20161101
  Transmission Date: 20170207
  Serious: Yes (Death, Hospitalization)
  Sender: FDA-Public Use
  Company Number: PHHY2016TW145690

PATIENT
  Age: 16 Year
  Sex: Male

DRUGS (2)
  1. METHOTREXATE. [Suspect]
     Active Substance: METHOTREXATE
     Indication: PRODUCT USED FOR UNKNOWN INDICATION
     Route: 065
  2. CISPLATIN. [Suspect]
     Active Substance: CISPLATIN
     Indication: PRODUCT USED FOR UNKNOWN INDICATION
     Route: 065

REACTIONS (10)
  - Gingival hypertrophy [Unknown]
  - Pyrexia [Fatal]
  - Multiple organ dysfunction syndrome [Fatal]
  - Leukocytosis [Unknown]
  - Acute myeloid leukaemia [Unknown]
  - Anaemia [Unknown]
  - Gingival bleeding [Unknown]
  - Thrombocytopenia [Unknown]
  - Pancytopenia [Fatal]
  - Septic shock [Fatal]
